FAERS Safety Report 10149415 (Version 5)
Quarter: 2014Q3

REPORT INFORMATION
  Report Type: Spontaneous
  Country: US (occurrence: None)
  Receive Date: 20140430
  Receipt Date: 20140821
  Transmission Date: 20150326
  Serious: Yes (Death, Hospitalization)
  Sender: FDA-Public Use
  Company Number: US-000971

PATIENT
  Age: 67 Year
  Sex: Female

DRUGS (11)
  1. VITAMIN D3 [Concomitant]
     Active Substance: CHOLECALCIFEROL
  2. PROTONIX [Concomitant]
     Active Substance: PANTOPRAZOLE SODIUM
  3. MORPHINE [Concomitant]
     Active Substance: MORPHINE
  4. GATTEX [Suspect]
     Active Substance: TEDUGLUTIDE\WATER
     Indication: SHORT-BOWEL SYNDROME
     Dosage: (0.22 ML QD, STREN/VOLUM:  0.22 ML|FREQU: ONCE DAY SUBCUTANEOUS)?
     Route: 058
     Dates: start: 20131216, end: 20140401
  5. PROMETHAZINE [Concomitant]
     Active Substance: PROMETHAZINE\PROMETHAZINE HYDROCHLORIDE
  6. SOLUTIONS FOR PARENTERAL NUTRITION [Concomitant]
     Active Substance: AMINO ACIDS\DEXTROSE\ELECTROLYTES NOS
  7. LASIX [Concomitant]
     Active Substance: FUROSEMIDE
  8. TYLENOL WITH CODEINE NO.3 [Concomitant]
     Active Substance: ACETAMINOPHEN\CODEINE PHOSPHATE
  9. SOMA [Concomitant]
     Active Substance: CARISOPRODOL
  10. SYNTHROID [Concomitant]
     Active Substance: LEVOTHYROXINE SODIUM
  11. FENTANYL. [Concomitant]
     Active Substance: FENTANYL

REACTIONS (10)
  - Intervertebral disc protrusion [None]
  - Peripheral swelling [None]
  - Rectal haemorrhage [None]
  - Spinal cord infection [None]
  - Vaginal haemorrhage [None]
  - Intervertebral discitis [None]
  - Staphylococcal sepsis [None]
  - Erythema [None]
  - Osteomyelitis [None]
  - Staphylococcal infection [None]

NARRATIVE: CASE EVENT DATE: 201402
